FAERS Safety Report 6796385-1 (Version None)
Quarter: 2010Q2

REPORT INFORMATION
  Report Type: 
  Country: None (occurrence: None)
  Receive Date: 20100622
  Receipt Date: 20100607
  Transmission Date: 20101027
  Serious: Yes (Hospitalization)
  Sender: FDA-Public Use
  Company Number: JP-2010-0872

PATIENT
  Age: 67 Year
  Sex: Male

DRUGS (6)
  1. NAVELBINE [Suspect]
     Indication: SQUAMOUS CELL CARCINOMA
     Dosage: 20 MG/M2 IV
     Route: 042
     Dates: start: 20091127, end: 20100312
  2. DE-766 [Suspect]
     Indication: LUNG SQUAMOUS CELL CARCINOMA STAGE UNSPECIFIED
     Dosage: 200 MG IV
     Route: 042
     Dates: start: 20091127, end: 20100312
  3. CISPLATIN [Suspect]
     Dosage: 80 MG/M2 IV
     Route: 042
     Dates: start: 20091127, end: 20100312
  4. MAGLAX [Concomitant]
  5. AMBROXOL [Concomitant]
  6. MYSLEE [Concomitant]

REACTIONS (12)
  - BLOOD ALKALINE PHOSPHATASE INCREASED [None]
  - BLOOD GLUCOSE DECREASED [None]
  - BLOOD MAGNESIUM INCREASED [None]
  - FATIGUE [None]
  - HAEMATOCRIT DECREASED [None]
  - HAEMOGLOBIN DECREASED [None]
  - HYPOPHAGIA [None]
  - ORGANISING PNEUMONIA [None]
  - PYREXIA [None]
  - RADIATION PNEUMONITIS [None]
  - RED BLOOD CELL COUNT DECREASED [None]
  - WHITE BLOOD CELL COUNT INCREASED [None]
